FAERS Safety Report 4279258-8 (Version None)
Quarter: 2004Q1

REPORT INFORMATION
  Report Type: 
  Country: None (occurrence: None)
  Receive Date: 20040126
  Receipt Date: 20040126
  Transmission Date: 20041129
  Serious: Yes (Other)
  Sender: FDA-Public Use
  Company Number: None

PATIENT
  Age: 82 Year
  Sex: Male
  Weight: 94.3 kg

DRUGS (15)
  1. GATIFLOXACIN [Suspect]
  2. DIPHENHYDRAMINE CAP [Concomitant]
  3. NYSTATIN [Concomitant]
  4. GATIFLOXACIN TAB [Concomitant]
  5. KETOCONAZOLE [Concomitant]
  6. WARFARIN SODIUM TAB [Concomitant]
  7. MILK OF MAGNESIA SUSP [Concomitant]
  8. LOPERAMIDE CAP [Concomitant]
  9. BISACODYL SUPP [Concomitant]
  10. ACETAMINOPHEN TAB [Concomitant]
  11. THIORIDAZINE TAB [Concomitant]
  12. TERAZOSIN CAP [Concomitant]
  13. METFORMIN TAB [Concomitant]
  14. LEVOTHYROXINE SODIUM TAB [Concomitant]
  15. DIGOXIN [Concomitant]

REACTIONS (1)
  - URTICARIA [None]
